FAERS Safety Report 10064558 (Version 1)
Quarter: 2014Q2

REPORT INFORMATION
  Report Type: Spontaneous
  Country: US (occurrence: None)
  Receive Date: 20140407
  Receipt Date: 20140407
  Transmission Date: 20141212
  Serious: Yes (Life-Threatening, Hospitalization)
  Sender: FDA-Public Use
  Company Number: None

PATIENT
  Age: 55 Year
  Sex: Male
  Weight: 74.84 kg

DRUGS (2)
  1. VERAPAMIL HCL [Suspect]
     Indication: HEADACHE
     Route: 048
     Dates: start: 20140220, end: 20140220
  2. VERAPAMIL HCL [Suspect]
     Indication: BLOOD PRESSURE
     Route: 048
     Dates: start: 20140220, end: 20140220

REACTIONS (4)
  - Dizziness [None]
  - Cardiac arrest [None]
  - Coma [None]
  - Confusional state [None]
